FAERS Safety Report 9028342 (Version 1)
Quarter: 2013Q1

REPORT INFORMATION
  Report Type: Spontaneous
  Country: US (occurrence: US)
  Receive Date: 20130124
  Receipt Date: 20130124
  Transmission Date: 20140127
  Serious: No
  Sender: FDA-Public Use
  Company Number: US-BAUSCH-BL-2012-001681

PATIENT
  Age: 50 Year
  Sex: Male

DRUGS (3)
  1. ALAWAY [Suspect]
     Indication: CONJUNCTIVAL DISORDER
     Dosage: ONE DROP IN EACH EYE TWICE DAILY
     Route: 047
     Dates: start: 20121104
  2. ALAWAY [Suspect]
     Indication: EYE PRURITUS
  3. ALAWAY [Suspect]
     Indication: OFF LABEL USE

REACTIONS (2)
  - Vision blurred [Not Recovered/Not Resolved]
  - Off label use [Not Recovered/Not Resolved]
